FAERS Safety Report 5786711-4 (Version None)
Quarter: 2008Q2

REPORT INFORMATION
  Report Type: 
  Country: None (occurrence: None)
  Receive Date: 20080624
  Receipt Date: 20080611
  Transmission Date: 20081010
  Serious: Yes (Hospitalization)
  Sender: FDA-Public Use
  Company Number: FR-MERCK-0804FRA00017

PATIENT
  Age: 51 Year
  Sex: Female

DRUGS (10)
  1. FOSAMAX [Suspect]
     Indication: OSTEOPOROSIS
     Route: 048
     Dates: start: 20070514, end: 20071023
  2. GLOBULIN, IMMUNE [Concomitant]
     Indication: HAEMOLYTIC ANAEMIA
     Route: 058
     Dates: start: 20060601, end: 20061201
  3. GLOBULIN, IMMUNE [Concomitant]
     Route: 058
     Dates: start: 20070514, end: 20071102
  4. GLOBULIN, IMMUNE [Concomitant]
     Route: 058
     Dates: start: 20080318
  5. FOLIC ACID [Concomitant]
     Route: 048
     Dates: start: 20060101, end: 20071023
  6. CYANOCOBALAMIN [Concomitant]
     Route: 048
     Dates: start: 20070413, end: 20071023
  7. GLOBULIN, IMMUNE [Concomitant]
     Route: 042
     Dates: start: 20070412, end: 20070413
  8. RITUXIMAB [Concomitant]
     Indication: HAEMOLYTIC ANAEMIA
     Route: 041
     Dates: start: 20070423
  9. PREDNISONE [Concomitant]
     Indication: PSORIASIS
     Route: 048
  10. CALCIUM CARBONATE AND CHOLECALCIFEROL [Concomitant]
     Indication: OSTEOPOROSIS
     Route: 048
     Dates: start: 20070514

REACTIONS (2)
  - DRUG ERUPTION [None]
  - PRURITUS [None]
